FAERS Safety Report 11003944 (Version 1)
Quarter: 2015Q2

REPORT INFORMATION
  Report Type: Spontaneous
  Country: US (occurrence: US)
  Receive Date: 20150409
  Receipt Date: 20150409
  Transmission Date: 20150821
  Serious: Yes (Other)
  Sender: FDA-Public Use
  Company Number: US-ASTRAZENECA-2015SE31180

PATIENT
  Age: 54 Year
  Sex: Female

DRUGS (2)
  1. ZOLMITRIPTAN. [Suspect]
     Active Substance: ZOLMITRIPTAN
     Indication: MIGRAINE
     Dosage: 2-3 TIMES DAILY FOR SEVERAL DAYS
     Route: 065
  2. ZOLMITRIPTAN. [Suspect]
     Active Substance: ZOLMITRIPTAN
     Indication: MIGRAINE
     Dosage: SPARINGLY ONLY WHEN SHE HAD MIGRAINES
     Route: 065

REACTIONS (1)
  - Stress cardiomyopathy [Unknown]
